FAERS Safety Report 8274361-X (Version None)
Quarter: 2012Q2

REPORT INFORMATION
  Report Type: 
  Country: None (occurrence: None)
  Receive Date: 20120411
  Receipt Date: 20120330
  Transmission Date: 20120825
  Serious: Yes (Death)
  Sender: FDA-Public Use
  Company Number: CA-ROCHE-1054797

PATIENT
  Age: 72 Year
  Sex: Female
  Weight: 69.008 kg

DRUGS (8)
  1. LEUCOVORIN CALCIUM [Concomitant]
     Route: 065
  2. AVASTIN [Suspect]
     Indication: PRODUCT USED FOR UNKNOWN INDICATION
     Dosage: THERAPY DURATION: 3 DAYS.
     Route: 042
  3. ATROPINE [Concomitant]
     Route: 065
  4. CAMPTOSAR [Concomitant]
     Route: 065
  5. DEXTROSE [Concomitant]
     Dosage: DEXTROSE 5% IN WATER
     Route: 065
  6. DEXAMETHASONE [Concomitant]
     Route: 048
  7. ONDANSETRON [Concomitant]
     Route: 065
  8. FLUOROURACIL [Concomitant]
     Route: 065

REACTIONS (2)
  - BLOOD CREATININE INCREASED [None]
  - INTESTINAL OBSTRUCTION [None]
